FAERS Safety Report 11395390 (Version 1)
Quarter: 2015Q3

REPORT INFORMATION
  Report Type: Spontaneous
  Country: FR (occurrence: FR)
  Receive Date: 20150819
  Receipt Date: 20150819
  Transmission Date: 20151125
  Serious: Yes (Other)
  Sender: FDA-Public Use
  Company Number: FR-PFIZER INC-2015270250

PATIENT
  Age: 79 Year
  Sex: Female

DRUGS (10)
  1. IMUREL /00001501/ [Concomitant]
     Active Substance: AZATHIOPRINE SODIUM
  2. INEXIUM /01479302/ [Concomitant]
     Active Substance: ESOMEPRAZOLE MAGNESIUM
  3. ASPEGIC [Concomitant]
     Active Substance: ASPIRIN DL-LYSINE
  4. PROGRAF [Concomitant]
     Active Substance: TACROLIMUS\TACROLIMUS ANHYDROUS
  5. OROCAL VITAMINE D3 [Concomitant]
     Active Substance: CALCIUM CARBONATE\CHOLECALCIFEROL
  6. ARANESP [Concomitant]
     Active Substance: DARBEPOETIN ALFA
  7. LASILIX /00032601/ [Concomitant]
     Active Substance: FUROSEMIDE
  8. LYRICA [Suspect]
     Active Substance: PREGABALIN
     Indication: PAIN
     Dosage: UNK
     Route: 048
     Dates: start: 20150725, end: 20150730
  9. TENORMIN [Concomitant]
     Active Substance: ATENOLOL
  10. NITRENDIPINE [Concomitant]
     Active Substance: NITRENDIPINE

REACTIONS (4)
  - Confusional state [Recovered/Resolved]
  - Encephalopathy [Recovered/Resolved]
  - Pneumonia pseudomonal [Recovered/Resolved]
  - Disorientation [Recovered/Resolved]

NARRATIVE: CASE EVENT DATE: 20150729
